FAERS Safety Report 9434693 (Version 1)
Quarter: 2013Q3

REPORT INFORMATION
  Report Type: Spontaneous
  Country: US (occurrence: None)
  Receive Date: 20130731
  Receipt Date: 20130731
  Transmission Date: 20140515
  Serious: Yes (Other)
  Sender: FDA-Public Use
  Company Number: None

PATIENT
  Age: 47 Year
  Sex: Female
  Weight: 143 kg

DRUGS (1)
  1. LEVOFLOXACIN INJECTION IN 5% DEXTROSE [Suspect]
     Dosage: 500 MG   ONE  IV
     Route: 042
     Dates: start: 20130730, end: 20130730

REACTIONS (2)
  - Pruritus [None]
  - Infusion site erythema [None]
